FAERS Safety Report 9228001 (Version 1)
Quarter: 2013Q2

REPORT INFORMATION
  Report Type: Spontaneous
  Country: FR (occurrence: FR)
  Receive Date: 20130412
  Receipt Date: 20130412
  Transmission Date: 20140414
  Serious: Yes (Life-Threatening, Other)
  Sender: FDA-Public Use
  Company Number: FR-ROCHE-1205911

PATIENT
  Age: 65 Year
  Sex: Female

DRUGS (12)
  1. ACTILYSE [Suspect]
     Indication: PULMONARY EMBOLISM
     Route: 042
     Dates: start: 20110422, end: 20110422
  2. HEPARIN [Suspect]
     Indication: PULMONARY EMBOLISM
     Route: 042
     Dates: start: 20110422, end: 20110423
  3. HEPARIN [Suspect]
     Route: 042
     Dates: start: 20110424
  4. ZANIDIP [Concomitant]
  5. COTAREG [Concomitant]
  6. TEMERIT [Concomitant]
  7. TAHOR [Concomitant]
  8. NOVONORM [Concomitant]
  9. GLUCOPHAGE [Concomitant]
  10. EFFEXOR [Concomitant]
  11. ATHYMIL [Concomitant]
  12. SULPIRIDE [Concomitant]

REACTIONS (5)
  - Duodenal ulcer haemorrhage [Recovered/Resolved]
  - Melaena [Unknown]
  - Haematoma [Recovered/Resolved]
  - Shock haemorrhagic [Recovered/Resolved]
  - Red blood cell count decreased [Recovered/Resolved]
